FAERS Safety Report 4819842-3 (Version None)
Quarter: 2005Q4

REPORT INFORMATION
  Report Type: 
  Country: None (occurrence: None)
  Receive Date: 20051102
  Receipt Date: 20051024
  Transmission Date: 20060501
  Serious: Yes (Death, Hospitalization)
  Sender: FDA-Public Use
  Company Number: FRWYE476704MAR05

PATIENT
  Age: 50 Year
  Sex: Male

DRUGS (13)
  1. TAZOCILLINE (PIPERACILLIN/TAZOBACTAM, INJECTION) [Suspect]
     Indication: PYREXIA
     Dosage: 4 G 4X PER 1 DAY INTRAVENOUS
     Route: 042
     Dates: start: 20050201
  2. TAZOCILLINE (PIPERACILLIN/TAZOBACTAM, INJECTION) [Suspect]
     Indication: WHITE BLOOD CELL COUNT DECREASED
     Dosage: 4 G 4X PER 1 DAY INTRAVENOUS
     Route: 042
     Dates: start: 20050201
  3. AMIKIN [Concomitant]
  4. VANCOMYCIN [Concomitant]
  5. TIENAM (CILASTATIN/IMIPENEM) [Concomitant]
  6. FLUCONAZOLE [Concomitant]
  7. NEORAL [Concomitant]
  8. PREDNISONE [Concomitant]
  9. NEXIUM [Concomitant]
  10. ATARAX [Concomitant]
  11. EPINEPHRINE [Concomitant]
  12. NOREPINEPHRINE BITARTRATE [Concomitant]
  13. DOBUTREX [Concomitant]

REACTIONS (4)
  - BLOOD POTASSIUM INCREASED [None]
  - CARDIAC ARREST [None]
  - CONDITION AGGRAVATED [None]
  - SEPTIC SHOCK [None]
